FAERS Safety Report 6750901-4 (Version None)
Quarter: 2010Q2

REPORT INFORMATION
  Report Type: 
  Country: None (occurrence: None)
  Receive Date: 20100528
  Receipt Date: 20100514
  Transmission Date: 20101027
  Serious: Yes (Death)
  Sender: FDA-Public Use
  Company Number: 1-22030022

PATIENT
  Age: 62 Year
  Sex: Male

DRUGS (8)
  1. FENTANYL-25 [Suspect]
     Indication: PROCEDURAL PAIN
     Dosage: 37 MCG/HR, Q 3 DAYS, TRANSDERMAL
     Route: 062
     Dates: start: 20091020
  2. EMEND [Suspect]
     Indication: PROPHYLAXIS OF NAUSEA AND VOMITING
     Dosage: 3 DAY REGIMEN, ORAL
     Route: 048
     Dates: start: 20100114, end: 20100116
  3. FLUOROURACIL [Concomitant]
  4. CISPLATIN [Concomitant]
  5. DOMPERIDONE [Concomitant]
  6. DEXAMETHASONE [Concomitant]
  7. ONDANSETRON [Concomitant]
  8. ZOPICLONE [Concomitant]

REACTIONS (12)
  - CORONARY ARTERY OCCLUSION [None]
  - CORONARY ARTERY STENOSIS [None]
  - DRUG INTERACTION [None]
  - DRUG TOXICITY [None]
  - EYELID DISORDER [None]
  - METASTASES TO LYMPH NODES [None]
  - PALLOR [None]
  - PROSTATE EXAMINATION ABNORMAL [None]
  - PULMONARY OEDEMA [None]
  - RESPIRATORY DEPRESSION [None]
  - SCAR [None]
  - SKIN NODULE [None]
